FAERS Safety Report 5943718-1 (Version None)
Quarter: 2008Q4

REPORT INFORMATION
  Report Type: 
  Country: None (occurrence: None)
  Receive Date: 20081106
  Receipt Date: 20080819
  Transmission Date: 20090506
  Serious: No
  Sender: FDA-Public Use
  Company Number: US-ABBOTT-08P-163-0471871-00

PATIENT
  Sex: Male
  Weight: 97.156 kg

DRUGS (3)
  1. KALETRA [Suspect]
     Indication: HIV INFECTION
     Dosage: 200/50 MILLIGRAMS
     Route: 048
     Dates: start: 20020101
  2. ABACAVIR SULFATE/LAMIVUDINE [Concomitant]
     Indication: DRUG USE FOR UNKNOWN INDICATION
  3. SILDENAFIL CITRATE [Concomitant]
     Indication: ERECTILE DYSFUNCTION
     Route: 048

REACTIONS (1)
  - GYNAECOMASTIA [None]
